FAERS Safety Report 5938633-3 (Version None)
Quarter: 2008Q4

REPORT INFORMATION
  Report Type: 
  Country: None (occurrence: None)
  Receive Date: 20081103
  Receipt Date: 20081022
  Transmission Date: 20090506
  Serious: Yes (Hospitalization, Other)
  Sender: FDA-Public Use
  Company Number: FR-ROCHE-593215

PATIENT
  Sex: Female
  Weight: 72 kg

DRUGS (5)
  1. MYCOPHENOLATE MOFETIL [Suspect]
     Route: 048
     Dates: start: 20050728
  2. NEORAL [Suspect]
     Route: 048
     Dates: start: 20060106
  3. STABLON [Concomitant]
  4. LASIX [Concomitant]
  5. TRIATEC [Concomitant]
     Dates: start: 20080601

REACTIONS (3)
  - BLOOD GLUCOSE ABNORMAL [None]
  - MACULAR OEDEMA [None]
  - RENAL FAILURE CHRONIC [None]
